FAERS Safety Report 7642592-5 (Version None)
Quarter: 2011Q3

REPORT INFORMATION
  Report Type: 
  Country: None (occurrence: None)
  Receive Date: 20110728
  Receipt Date: 20110722
  Transmission Date: 20111222
  Serious: Yes (Other)
  Sender: FDA-Public Use
  Company Number: JP-PFIZER INC-2011157244

PATIENT
  Age: 78 Year
  Sex: Male

DRUGS (6)
  1. AMIODARONE HCL [Suspect]
     Dosage: UNK
     Route: 042
     Dates: start: 20110627
  2. ADALAT [Concomitant]
  3. FAMOTIDINE [Concomitant]
  4. PLETAL [Concomitant]
  5. AMIODARONE HYDROCHLORIDE [Suspect]
     Indication: VENTRICULAR FIBRILLATION
     Dosage: UNK
     Route: 042
     Dates: start: 20110627
  6. AMIODARONE HCL [Suspect]
     Indication: VENTRICULAR FIBRILLATION
     Dosage: UNK
     Route: 048
     Dates: start: 20110601

REACTIONS (1)
  - HYPOGLYCAEMIA [None]
